FAERS Safety Report 9626398 (Version 1)
Quarter: 2013Q4

REPORT INFORMATION
  Report Type: Spontaneous
  Country: US (occurrence: None)
  Receive Date: 20131015
  Receipt Date: 20131015
  Transmission Date: 20140711
  Serious: Yes (Other)
  Sender: FDA-Public Use
  Company Number: None

PATIENT
  Age: 52 Year
  Sex: Female
  Weight: 125.19 kg

DRUGS (1)
  1. ACTEMRA [Suspect]

REACTIONS (2)
  - Contusion [None]
  - Alopecia [None]
